FAERS Safety Report 12539773 (Version 1)
Quarter: 2016Q3

REPORT INFORMATION
  Report Type: Spontaneous
  Country: US (occurrence: US)
  Receive Date: 20160708
  Receipt Date: 20160708
  Transmission Date: 20161109
  Serious: No
  Sender: FDA-Public Use
  Company Number: US-BAYER-2016-127515

PATIENT
  Sex: Female

DRUGS (1)
  1. MIRENA [Suspect]
     Active Substance: LEVONORGESTREL
     Indication: CONTRACEPTION
     Dosage: 20 UNK, UNK
     Route: 015
     Dates: start: 20160415, end: 20160607

REACTIONS (1)
  - Uterine pain [None]

NARRATIVE: CASE EVENT DATE: 2016
